FAERS Safety Report 16144369 (Version 1)
Quarter: 2019Q2

REPORT INFORMATION
  Report Type: Spontaneous
  Country: RS (occurrence: RS)
  Receive Date: 20190401
  Receipt Date: 20190401
  Transmission Date: 20190711
  Serious: Yes (Hospitalization, Other)
  Sender: FDA-Public Use
  Company Number: RS-ROCHE-2292620

PATIENT
  Sex: Female

DRUGS (5)
  1. CARBOPLATIN. [Suspect]
     Active Substance: CARBOPLATIN
     Indication: OVARIAN CANCER
     Route: 065
  2. TAXOL [Suspect]
     Active Substance: PACLITAXEL
     Indication: OVARIAN CANCER
     Route: 065
  3. ERYTHROMYCIN. [Concomitant]
     Active Substance: ERYTHROMYCIN
  4. CIPROCINAL [Concomitant]
     Active Substance: CIPROFLOXACIN
  5. AVASTIN [Suspect]
     Active Substance: BEVACIZUMAB
     Indication: OVARIAN CANCER
     Route: 065

REACTIONS (9)
  - Thrombocytopenia [Unknown]
  - Diarrhoea [Unknown]
  - C-reactive protein increased [Recovering/Resolving]
  - Oropharyngeal pain [Unknown]
  - Pyrexia [Recovered/Resolved]
  - Leukopenia [Unknown]
  - Speech sound disorder [Unknown]
  - Epistaxis [Unknown]
  - Cough [Unknown]

NARRATIVE: CASE EVENT DATE: 20190314
